FAERS Safety Report 12802942 (Version 1)
Quarter: 2016Q4

REPORT INFORMATION
  Report Type: Spontaneous
  Country: GB (occurrence: GB)
  Receive Date: 20161003
  Receipt Date: 20161003
  Transmission Date: 20170207
  Serious: Yes (Other)
  Sender: FDA-Public Use
  Company Number: GB-WEST-WARD PHARMACEUTICALS CORP.-GB-H14001-16-01974

PATIENT
  Age: 68 Year
  Sex: Female

DRUGS (4)
  1. CO-AMOXICLAV [Suspect]
     Active Substance: AMOXICILLIN\CLAVULANIC ACID
     Indication: OTITIS EXTERNA
     Route: 048
     Dates: start: 20160401, end: 20160405
  2. LISINOPRIL. [Concomitant]
     Active Substance: LISINOPRIL
     Indication: PRODUCT USED FOR UNKNOWN INDICATION
     Route: 065
  3. COCODAMOL [Concomitant]
     Active Substance: ACETAMINOPHEN\CODEINE PHOSPHATE
     Indication: PRODUCT USED FOR UNKNOWN INDICATION
     Route: 065
  4. BENDROFLUMETHIAZIDE [Concomitant]
     Active Substance: BENDROFLUMETHIAZIDE
     Indication: PRODUCT USED FOR UNKNOWN INDICATION
     Route: 065

REACTIONS (4)
  - IgA nephropathy [Recovered/Resolved with Sequelae]
  - Hypersensitivity vasculitis [Recovered/Resolved]
  - Proteinuria [Unknown]
  - Haematuria [Unknown]

NARRATIVE: CASE EVENT DATE: 20160402
